FAERS Safety Report 9611051 (Version 2)
Quarter: 2014Q1

REPORT INFORMATION
  Report Type: Spontaneous
  Country: SE (occurrence: SE)
  Receive Date: 20131009
  Receipt Date: 20140217
  Transmission Date: 20141002
  Serious: Yes (Hospitalization, Other)
  Sender: FDA-Public Use
  Company Number: ALCN2013SE005033

PATIENT
  Age: 78 Year
  Sex: Male

DRUGS (4)
  1. AZOPT [Suspect]
     Indication: INTRAOCULAR PRESSURE INCREASED
     Dosage: 1 GTT, BID
     Dates: start: 200809, end: 2011
  2. AZOPT [Suspect]
     Dosage: 1 GTT, TID
     Dates: start: 201109, end: 20120410
  3. GANFORT [Suspect]
     Dosage: UNK
     Dates: end: 2011
  4. LUMIGAN [Concomitant]
     Dosage: 1 GTT, QD
     Route: 047
     Dates: start: 2011

REACTIONS (7)
  - Maculopathy [Not Recovered/Not Resolved]
  - Amaurosis fugax [Recovered/Resolved with Sequelae]
  - Vitreous detachment [Not Recovered/Not Resolved]
  - Atrial fibrillation [Unknown]
  - Visual acuity reduced [Not Recovered/Not Resolved]
  - Cataract [Not Recovered/Not Resolved]
  - Intraocular pressure increased [Recovered/Resolved]
